FAERS Safety Report 8959416 (Version 1)
Quarter: 2012Q4

REPORT INFORMATION
  Report Type: 
  Country: US (occurrence: US)
  Receive Date: 20121212
  Receipt Date: 20121212
  Transmission Date: 20130627
  Serious: No
  Sender: FDA-Public Use
  Company Number: US-BIOGENIDEC-2012BI059131

PATIENT
  Sex: Male

DRUGS (3)
  1. TYSABRI [Suspect]
     Indication: MULTIPLE SCLEROSIS
     Route: 042
     Dates: start: 20091001, end: 20110726
  2. TYSABRI [Suspect]
     Indication: MULTIPLE SCLEROSIS
     Route: 042
     Dates: start: 20120628
  3. GILENYA [Concomitant]
     Indication: PRODUCT USED FOR UNKNOWN INDICATION

REACTIONS (8)
  - Tremor [Unknown]
  - Mobility decreased [Unknown]
  - Gait disturbance [Unknown]
  - Memory impairment [Unknown]
  - Visual impairment [Unknown]
  - Hearing impaired [Unknown]
  - Multiple sclerosis [Unknown]
  - Fatigue [Unknown]
